FAERS Safety Report 4504178-0 (Version None)
Quarter: 2004Q4

REPORT INFORMATION
  Report Type: 
  Country: None (occurrence: None)
  Receive Date: 20041117
  Receipt Date: 20041029
  Transmission Date: 20050328
  Serious: Yes (Life-Threatening, Hospitalization)
  Sender: FDA-Public Use
  Company Number: 20041100479

PATIENT
  Age: 50 Year
  Sex: Male

DRUGS (6)
  1. FAMOTIDINE [Suspect]
     Dosage: 20 MG Q12HR IV
     Route: 042
  2. EPINEPHRINE [Concomitant]
  3. AMIODARONE [Concomitant]
  4. DOPAMINE HCL [Concomitant]
  5. FENTANYL [Concomitant]
  6. CEFAZOLIN [Concomitant]

REACTIONS (7)
  - CONDITION AGGRAVATED [None]
  - ELECTROCARDIOGRAM QT CORRECTED INTERVAL PROLONGED [None]
  - LONG QT SYNDROME [None]
  - NODAL RHYTHM [None]
  - POST PROCEDURAL COMPLICATION [None]
  - RENAL FAILURE [None]
  - TORSADE DE POINTES [None]
